FAERS Safety Report 5320987-2 (Version None)
Quarter: 2007Q2

REPORT INFORMATION
  Report Type: 
  Country: None (occurrence: None)
  Receive Date: 20070510
  Receipt Date: 20070502
  Transmission Date: 20071010
  Serious: Yes (Hospitalization, Other)
  Sender: FDA-Public Use
  Company Number: PHEH2007US06803

PATIENT
  Age: 59 Year
  Sex: Female

DRUGS (14)
  1. ZELMAC HTF+TAB [Suspect]
     Indication: IRRITABLE BOWEL SYNDROME
     Dosage: 6 MG, BID
     Route: 048
     Dates: start: 20060501, end: 20070430
  2. ACTOS [Concomitant]
  3. GLYBURIDE [Concomitant]
  4. METFORMIN HCL [Concomitant]
  5. LISINOPRIL [Concomitant]
  6. LORATADINE [Concomitant]
  7. PLAVIX [Concomitant]
  8. PRAVACHOL [Concomitant]
  9. PRAVASTATIN [Concomitant]
  10. PRILOSEC [Concomitant]
  11. REGLAN [Concomitant]
  12. VITAMIN D [Concomitant]
  13. FOSAMAX [Concomitant]
  14. ASPIRIN [Concomitant]

REACTIONS (3)
  - FACIAL PALSY [None]
  - PARAESTHESIA [None]
  - TRANSIENT ISCHAEMIC ATTACK [None]
